FAERS Safety Report 4365327-0 (Version None)
Quarter: 2004Q2

REPORT INFORMATION
  Report Type: 
  Country: None (occurrence: None)
  Receive Date: 20040521
  Receipt Date: 20040405
  Transmission Date: 20050107
  Serious: Yes (Hospitalization, Other)
  Sender: FDA-Public Use
  Company Number: USA040566725

PATIENT
  Age: 87 Year
  Sex: Female

DRUGS (1)
  1. HUMULIN 70/30 [Suspect]
     Indication: DIABETES MELLITUS NON-INSULIN-DEPENDENT
     Dates: start: 20040301

REACTIONS (4)
  - ASTHENIA [None]
  - COLLAPSE OF LUNG [None]
  - PNEUMONIA [None]
  - RIB FRACTURE [None]
